FAERS Safety Report 17202890 (Version 1)
Quarter: 2019Q4

REPORT INFORMATION
  Report Type: Spontaneous
  Country: US (occurrence: US)
  Receive Date: 20191226
  Receipt Date: 20191226
  Transmission Date: 20200122
  Serious: No
  Sender: FDA-Public Use
  Company Number: US-PFIZER INC-2019205564

PATIENT
  Age: 49 Year
  Sex: Female

DRUGS (3)
  1. LYRICA [Suspect]
     Active Substance: PREGABALIN
     Dosage: 90 MG, UNK
  2. LYRICA [Suspect]
     Active Substance: PREGABALIN
     Dosage: 300 MG, DAILY (1 CAPSULE EVERY MORNING AND 3 AT BEDTIME)
  3. LYRICA [Suspect]
     Active Substance: PREGABALIN
     Dosage: 220 MG, UNK

REACTIONS (1)
  - Drug withdrawal syndrome [Unknown]
